FAERS Safety Report 8296954-6 (Version None)
Quarter: 2012Q2

REPORT INFORMATION
  Report Type: 
  Country: None (occurrence: None)
  Receive Date: 20120419
  Receipt Date: 20120410
  Transmission Date: 20120825
  Serious: No
  Sender: FDA-Public Use
  Company Number: US-BIOGENIDEC-2012BI012787

PATIENT
  Age: 40 Year
  Sex: Female

DRUGS (3)
  1. SOLU-MEDROL [Concomitant]
  2. AVONEX [Concomitant]
     Indication: MULTIPLE SCLEROSIS
     Route: 030
  3. TYSABRI [Suspect]
     Indication: MULTIPLE SCLEROSIS
     Route: 042
     Dates: start: 20120206

REACTIONS (4)
  - MUSCULAR WEAKNESS [None]
  - BLADDER DISORDER [None]
  - DRUG INEFFECTIVE [None]
  - HYPERSENSITIVITY [None]
